FAERS Safety Report 13745375 (Version 1)
Quarter: 2017Q3

REPORT INFORMATION
  Report Type: Spontaneous
  Country: US (occurrence: US)
  Receive Date: 20170712
  Receipt Date: 20170712
  Transmission Date: 20171127
  Serious: Yes (Other)
  Sender: FDA-Public Use
  Company Number: US-PROCTER_AND_GAMBLE-GS17075010

PATIENT
  Age: 34 Year
  Sex: Male

DRUGS (1)
  1. CREST [Suspect]
     Active Substance: SODIUM FLUORIDE
     Dosage: PEA SIZE, 3 /DAY
     Route: 002
     Dates: end: 2010

REACTIONS (4)
  - Tooth injury [Not Recovered/Not Resolved]
  - Dental caries [Not Recovered/Not Resolved]
  - Sensitivity of teeth [Recovered/Resolved]
  - Tooth demineralisation [Not Recovered/Not Resolved]

NARRATIVE: CASE EVENT DATE: 2010
